FAERS Safety Report 19441348 (Version 2)
Quarter: 2025Q2

REPORT INFORMATION
  Report Type: Spontaneous
  Country: FR (occurrence: FR)
  Receive Date: 20210621
  Receipt Date: 20250626
  Transmission Date: 20250716
  Serious: Yes (Hospitalization)
  Sender: AUROBINDO
  Company Number: FR-PFM-2021-05335

PATIENT
  Age: 28 Year
  Sex: Male

DRUGS (3)
  1. NAPROXEN [Suspect]
     Active Substance: NAPROXEN
     Indication: Arthralgia
     Route: 048
  2. AMOXICILLIN\CLAVULANIC ACID [Concomitant]
     Active Substance: AMOXICILLIN\CLAVULANIC ACID
     Indication: Cellulitis
     Route: 065
  3. CALCIUM [Concomitant]
     Active Substance: CALCIUM
     Indication: Cellulitis
     Route: 065

REACTIONS (13)
  - Blood creatine phosphokinase increased [Unknown]
  - Hypocalcaemia [Recovering/Resolving]
  - Muscle spasms [Unknown]
  - Leukocytosis [Unknown]
  - Dyspnoea [Unknown]
  - Psoriasis [Recovering/Resolving]
  - Tachycardia [Unknown]
  - Blood phosphorus increased [Unknown]
  - Trousseau^s sign [Unknown]
  - Generalised oedema [Unknown]
  - C-reactive protein increased [Recovering/Resolving]
  - Weight increased [Unknown]
  - Hypomagnesaemia [Unknown]
